FAERS Safety Report 4380250-3 (Version None)
Quarter: 2004Q2

REPORT INFORMATION
  Report Type: 
  Country: None (occurrence: None)
  Receive Date: 20040614
  Receipt Date: 20040601
  Transmission Date: 20050107
  Serious: Yes (Other)
  Sender: FDA-Public Use
  Company Number: 2004011127

PATIENT
  Age: 32 Year
  Sex: Female

DRUGS (3)
  1. ZYRTEC [Suspect]
     Indication: RHINITIS ALLERGIC
     Dosage: ORAL
     Route: 048
  2. SERETIDE ^ALLEN + HANBURYS LTD^ (FLUTICASONE PROPIONATE, SALMETEROL) [Concomitant]
  3. ORAL CONTRACEPTIVE [Concomitant]

REACTIONS (4)
  - DIZZINESS [None]
  - DYSPNOEA [None]
  - HEADACHE [None]
  - NAUSEA [None]
